FAERS Safety Report 10021299 (Version 1)
Quarter: 2014Q1

REPORT INFORMATION
  Report Type: Spontaneous
  Country: US (occurrence: None)
  Receive Date: 20140318
  Receipt Date: 20140318
  Transmission Date: 20141002
  Serious: Yes (Disabling)
  Sender: FDA-Public Use
  Company Number: None

PATIENT
  Age: 43 Year
  Sex: Female
  Weight: 56.7 kg

DRUGS (1)
  1. EPIDUO GEL [Suspect]
     Indication: HYPERSENSITIVITY
     Dosage: ONCE DAILY IN EVENING  ONCE DAILY APPLIED TO A SURFACE, USUALLY THE SKIN
     Route: 061
     Dates: start: 20120810, end: 20140104

REACTIONS (3)
  - Hypersensitivity [None]
  - Sinus disorder [None]
  - Eustachian tube disorder [None]
